FAERS Safety Report 5053034-0 (Version None)
Quarter: 2006Q3

REPORT INFORMATION
  Report Type: 
  Country: None (occurrence: None)
  Receive Date: 20060712
  Receipt Date: 20060628
  Transmission Date: 20061208
  Serious: Yes (Hospitalization, Other)
  Sender: FDA-Public Use
  Company Number: 2005163001

PATIENT
  Sex: Female
  Weight: 59.8748 kg

DRUGS (6)
  1. BEXTRA [Suspect]
     Indication: ARTHRITIS
     Dosage: 20 MG (20 MG, 1 IN 1 D), ORAL
     Route: 048
  2. BEXTRA [Suspect]
     Indication: SYSTEMIC LUPUS ERYTHEMATOSUS
     Dosage: 20 MG (20 MG, 1 IN 1 D), ORAL
     Route: 048
  3. PLAQUENIL [Concomitant]
  4. ARAVA [Concomitant]
  5. SULFASALAZINE [Concomitant]
  6. VIOXX [Concomitant]

REACTIONS (5)
  - ALOPECIA [None]
  - DEPRESSION [None]
  - DERMATITIS ALLERGIC [None]
  - PHOTOSENSITIVITY REACTION [None]
  - STEVENS-JOHNSON SYNDROME [None]
